FAERS Safety Report 24547679 (Version 1)
Quarter: 2024Q4

REPORT INFORMATION
  Report Type: Report from Study
  Country: JP (occurrence: JP)
  Receive Date: 20241025
  Receipt Date: 20241025
  Transmission Date: 20250115
  Serious: Yes (Other)
  Sender: MERZ
  Company Number: JP-teijin-202402168_XEO_P_1

PATIENT

DRUGS (1)
  1. XEOMIN [Suspect]
     Active Substance: INCOBOTULINUMTOXINA
     Indication: Muscle spasticity
     Route: 030
     Dates: start: 20231211, end: 20231211

REACTIONS (6)
  - Cholecystitis [Unknown]
  - Pneumonia aspiration [Unknown]
  - Pneumonia aspiration [Unknown]
  - Pneumonia aspiration [Unknown]
  - Pneumonia aspiration [Unknown]
  - Hypoglycaemia [Unknown]

NARRATIVE: CASE EVENT DATE: 20240307
